FAERS Safety Report 4968388-0 (Version None)
Quarter: 2006Q2

REPORT INFORMATION
  Report Type: 
  Country: None (occurrence: None)
  Receive Date: 20060410
  Receipt Date: 20031014
  Transmission Date: 20061013
  Serious: Yes (Hospitalization)
  Sender: FDA-Public Use
  Company Number: CA-BOEHRINGER INGELHEIM PHARMACEUTICALS, INC.-2003-CN-00447CN

PATIENT

DRUGS (1)
  1. MOBICOX TABLETS [Suspect]

REACTIONS (1)
  - HAEMORRHAGE [None]
